FAERS Safety Report 8521083-3 (Version None)
Quarter: 2012Q3

REPORT INFORMATION
  Report Type: 
  Country: None (occurrence: None)
  Receive Date: 20120712
  Receipt Date: 20120712
  Transmission Date: 20120928
  Serious: Yes (Hospitalization)
  Sender: FDA-Public Use
  Company Number: None

PATIENT
  Age: 42 Year
  Sex: Male
  Weight: 108.8633 kg

DRUGS (3)
  1. MINIPRESS [Suspect]
     Indication: PROPHYLAXIS
     Dosage: 1 MG 1/DAY PO
     Route: 048
     Dates: start: 20120709, end: 20120709
  2. MINIPRESS [Suspect]
     Indication: INSOMNIA
     Dosage: 1 MG 1/DAY PO
     Route: 048
     Dates: start: 20120709, end: 20120709
  3. MINIPRESS [Suspect]
     Indication: NIGHTMARE
     Dosage: 1 MG 1/DAY PO
     Route: 048
     Dates: start: 20120709, end: 20120709

REACTIONS (2)
  - CHEST PAIN [None]
  - DYSPNOEA [None]
